FAERS Safety Report 17651652 (Version 1)
Quarter: 2020Q2

REPORT INFORMATION
  Report Type: Spontaneous
  Country: US (occurrence: US)
  Receive Date: 20200409
  Receipt Date: 20200409
  Transmission Date: 20200713
  Serious: Yes (Disabling)
  Sender: FDA-Public Use
  Company Number: None

PATIENT
  Sex: Female
  Weight: 60.9 kg

DRUGS (3)
  1. YAZ [Suspect]
     Active Substance: DROSPIRENONE\ETHINYL ESTRADIOL
     Indication: MENORRHAGIA
     Route: 048
     Dates: start: 20100127, end: 20111209
  2. YAZ [Suspect]
     Active Substance: DROSPIRENONE\ETHINYL ESTRADIOL
     Indication: DYSMENORRHOEA
     Route: 048
     Dates: start: 20100127, end: 20111209
  3. YAZ [Suspect]
     Active Substance: DROSPIRENONE\ETHINYL ESTRADIOL
     Indication: PREMENSTRUAL DYSPHORIC DISORDER
     Route: 048
     Dates: start: 20100127, end: 20111209

REACTIONS (8)
  - Affect lability [None]
  - Anxiety [None]
  - Insomnia [None]
  - Pain [None]
  - Loss of personal independence in daily activities [None]
  - Migraine [None]
  - Malaise [None]
  - Product substitution issue [None]
